FAERS Safety Report 8199558-9 (Version None)
Quarter: 2012Q1

REPORT INFORMATION
  Report Type: 
  Country: None (occurrence: None)
  Receive Date: 20120310
  Receipt Date: 20120112
  Transmission Date: 20120608
  Serious: Yes (Death)
  Sender: FDA-Public Use
  Company Number: US-PFIZER INC-2012010469

PATIENT
  Sex: Male

DRUGS (1)
  1. XALKORI [Suspect]
     Indication: LYMPHOMA
     Dosage: 250 MG, UNK
     Dates: end: 20111102

REACTIONS (2)
  - LYMPHOMA [None]
  - DISEASE PROGRESSION [None]
